FAERS Safety Report 20722016 (Version 1)
Quarter: 2022Q2

REPORT INFORMATION
  Report Type: Spontaneous
  Country: US (occurrence: US)
  Receive Date: 20220418
  Receipt Date: 20220418
  Transmission Date: 20220720
  Serious: Yes (Other)
  Sender: FDA-Public Use
  Company Number: US-SA-SAC20220414001464

PATIENT
  Age: 55 Year
  Sex: Female

DRUGS (1)
  1. ZANTAC [Suspect]
     Active Substance: RANITIDINE HYDROCHLORIDE
     Indication: Gastrooesophageal reflux disease
     Dosage: 150 MG, QD
     Dates: start: 201401, end: 201908

REACTIONS (3)
  - Lung carcinoma cell type unspecified stage I [Recovering/Resolving]
  - Colorectal cancer stage I [Recovering/Resolving]
  - Appendix cancer [Recovering/Resolving]

NARRATIVE: CASE EVENT DATE: 20171218
